FAERS Safety Report 5898599-1 (Version None)
Quarter: 2008Q3

REPORT INFORMATION
  Report Type: 
  Country: None (occurrence: None)
  Receive Date: 20080925
  Receipt Date: 20080220
  Transmission Date: 20090109
  Serious: No
  Sender: FDA-Public Use
  Company Number: A0709397A

PATIENT
  Age: 31 Year
  Sex: Male

DRUGS (3)
  1. WELLBUTRIN XL [Suspect]
     Indication: MOOD SWINGS
     Dosage: 150MG PER DAY
     Route: 048
     Dates: start: 20080206
  2. XANAX [Concomitant]
  3. ROZEREM [Concomitant]

REACTIONS (5)
  - AGITATION [None]
  - ANXIETY [None]
  - INSOMNIA [None]
  - MALAISE [None]
  - TREMOR [None]
